FAERS Safety Report 5093998-2 (Version None)
Quarter: 2006Q3

REPORT INFORMATION
  Report Type: 
  Country: None (occurrence: None)
  Receive Date: 20060829
  Receipt Date: 20060810
  Transmission Date: 20061208
  Serious: Yes (Other)
  Sender: FDA-Public Use
  Company Number: 229115

PATIENT
  Sex: Female

DRUGS (3)
  1. AVASTIN [Suspect]
     Indication: DRUG USE FOR UNKNOWN INDICATION
     Dates: start: 20060615
  2. CAPECITABINE (CAPECITABINE) [Concomitant]
  3. OXALIPLATIN [Concomitant]

REACTIONS (1)
  - DEMENTIA [None]
